FAERS Safety Report 5748960-0 (Version None)
Quarter: 2008Q2

REPORT INFORMATION
  Report Type: 
  Country: None (occurrence: None)
  Receive Date: 20080527
  Receipt Date: 20080521
  Transmission Date: 20081010
  Serious: Yes (Hospitalization)
  Sender: FDA-Public Use
  Company Number: FR-RANBAXY-2008RR-15337

PATIENT

DRUGS (5)
  1. PRAVASTATIN [Suspect]
     Dosage: UNK
  2. FLUVASTATIN [Suspect]
  3. HYDROXYCHLOROQUINE SULFATE [Concomitant]
  4. AZATHIOPRINE [Concomitant]
  5. METHOTREXATE [Concomitant]

REACTIONS (1)
  - POLYMYOSITIS [None]
